FAERS Safety Report 16997354 (Version 4)
Quarter: 2020Q1

REPORT INFORMATION
  Report Type: Spontaneous
  Country: ES (occurrence: ES)
  Receive Date: 20191106
  Receipt Date: 20200102
  Transmission Date: 20200409
  Serious: Yes (Other)
  Sender: FDA-Public Use
  Company Number: ES-AUROBINDO-AUR-APL-2019-070520

PATIENT
  Age: 53 Year
  Sex: Male

DRUGS (3)
  1. SODIUM THIOSULFATE [Concomitant]
     Active Substance: SODIUM THIOSULFATE
     Indication: CALCIPHYLAXIS
     Dosage: UNK
     Route: 065
  2. SEVELAMER [Suspect]
     Active Substance: SEVELAMER
     Indication: CALCIPHYLAXIS
     Dosage: 8 GRAM, ONCE A DAY
     Route: 065
  3. VITAMIN K [Concomitant]
     Active Substance: PHYTONADIONE
     Indication: CALCIPHYLAXIS
     Dosage: UNK
     Route: 065

REACTIONS (13)
  - Colitis [Recovering/Resolving]
  - Gastrointestinal haemorrhage [Recovering/Resolving]
  - Pseudopolyp [Recovering/Resolving]
  - Large intestine perforation [Recovered/Resolved]
  - Large intestine polyp [Recovering/Resolving]
  - Crystal deposit intestine [Recovering/Resolving]
  - Gastric polyps [Recovering/Resolving]
  - Product deposit [Unknown]
  - Rectal haemorrhage [Recovered/Resolved]
  - Gastrointestinal injury [Recovering/Resolving]
  - Haemoglobin decreased [Recovering/Resolving]
  - Foreign body reaction [Recovering/Resolving]
  - Diverticulum intestinal [Recovering/Resolving]
